FAERS Safety Report 19745367 (Version 1)
Quarter: 2021Q3

REPORT INFORMATION
  Report Type: Spontaneous
  Country: GB (occurrence: GB)
  Receive Date: 20210825
  Receipt Date: 20210825
  Transmission Date: 20211014
  Serious: Yes (Hospitalization, Other)
  Sender: FDA-Public Use
  Company Number: GB-MSNLABS-2021MSNSPO00341

PATIENT

DRUGS (12)
  1. CHEMYDUR XL [Concomitant]
     Active Substance: ISOSORBIDE MONONITRATE
     Indication: PRODUCT USED FOR UNKNOWN INDICATION
     Dosage: MORNING
     Route: 065
  2. ASPIRIN. [Suspect]
     Active Substance: ASPIRIN
     Indication: PRODUCT USED FOR UNKNOWN INDICATION
     Route: 065
  3. ADCAL?D3 [Concomitant]
     Active Substance: CALCIUM CARBONATE\CHOLECALCIFEROL
     Indication: PRODUCT USED FOR UNKNOWN INDICATION
     Dosage: MORNING AND NIGHT
     Route: 065
  4. DONEPEZIL. [Concomitant]
     Active Substance: DONEPEZIL
     Dosage: NIGHT
     Route: 065
  5. BEZAFIBRATE [Concomitant]
     Active Substance: BEZAFIBRATE
     Indication: PRODUCT USED FOR UNKNOWN INDICATION
     Dosage: MORNING
     Route: 065
  6. APIXABAN [Suspect]
     Active Substance: APIXABAN
     Indication: PRODUCT USED FOR UNKNOWN INDICATION
     Route: 065
  7. ATORVASTATIN TABLETS 80MG [Suspect]
     Active Substance: ATORVASTATIN
     Indication: PRODUCT USED FOR UNKNOWN INDICATION
     Dosage: AT NIGHT
     Route: 065
  8. BISOPROLOL [Concomitant]
     Active Substance: BISOPROLOL
     Indication: PRODUCT USED FOR UNKNOWN INDICATION
     Dosage: MORNING
     Route: 065
  9. FUROSEMIDE. [Concomitant]
     Active Substance: FUROSEMIDE
     Indication: PRODUCT USED FOR UNKNOWN INDICATION
     Dosage: MORNING
     Route: 065
  10. ASTRAZENECA COVID?19 VACCINE [Concomitant]
     Active Substance: AZD-1222
     Indication: PRODUCT USED FOR UNKNOWN INDICATION
     Dosage: DOSE 2
     Route: 065
  11. SOLIFENACIN [Concomitant]
     Active Substance: SOLIFENACIN
     Indication: PRODUCT USED FOR UNKNOWN INDICATION
     Dosage: MORNING
     Route: 065
  12. ASTRAZENECA COVID?19 VACCINE [Concomitant]
     Active Substance: AZD-1222
     Dosage: DOSE 1
     Route: 065

REACTIONS (3)
  - Eyelid ptosis [Unknown]
  - Thalamus haemorrhage [Unknown]
  - Headache [Unknown]
